FAERS Safety Report 4462426-X (Version None)
Quarter: 2004Q3

REPORT INFORMATION
  Report Type: 
  Country: None (occurrence: None)
  Receive Date: 20040928
  Receipt Date: 20040915
  Transmission Date: 20050211
  Serious: Yes (Life-Threatening)
  Sender: FDA-Public Use
  Company Number: STA-AE-04-MTX-412

PATIENT
  Age: 55 Year
  Sex: Female

DRUGS (13)
  1. RHEUMATREX [Suspect]
     Indication: RHEUMATOID ARTHRITIS
     Dosage: 4 MG 1 X PER 1 WK, ORAL
     Route: 048
     Dates: start: 20030802
  2. METHOTREXATE [Suspect]
     Indication: RHEUMATOID ARTHRITIS
     Dosage: 2.5 MG 1 X PER 1 DAY, ORAL
     Route: 048
     Dates: start: 20030802, end: 20030913
  3. METHOTREXATE [Suspect]
     Indication: RHEUMATOID ARTHRITIS
     Dosage: 2 MG 1 X PER 1 WK
     Dates: start: 20030927, end: 20031010
  4. LIMETHASONE (DEXAMETHASONE PALMITATE/GLYCERL/LECITHIN/SOYA OIL) [Suspect]
     Indication: RHEUMATOID ARTHRITIS
     Dosage: 4 MG 1 X PER 1 DAY, IM
     Route: 030
     Dates: start: 19950101, end: 20030830
  5. PREDNISOLONE [Suspect]
     Indication: RHEUMATOID ARTHRITIS
     Dosage: 5 MG 1 X PER 1 DAY, ORAL
     Route: 048
     Dates: start: 19940101
  6. REMICADE [Suspect]
     Indication: RHEUMATOID ARTHRITIS
     Dosage: 3 MG/KG/DAY, INTRAVENOUS
     Route: 042
     Dates: start: 20030902, end: 20030902
  7. VOLTAREN [Concomitant]
  8. APLACE (TROXIPIDE) [Concomitant]
  9. PARIET (RABEPRAZOLE) [Concomitant]
  10. .... [Concomitant]
  11. GASTROM I*ECABET MONOSODIUM) [Concomitant]
  12. FOLIC ACID [Concomitant]
  13. THIOLA (TIOPRONIN) [Concomitant]

REACTIONS (3)
  - BRONCHOPNEUMONIA [None]
  - LYMPHADENOPATHY [None]
  - PHARYNX DISCOMFORT [None]
